FAERS Safety Report 5533905-9 (Version None)
Quarter: 2007Q4

REPORT INFORMATION
  Report Type: 
  Country: None (occurrence: None)
  Receive Date: 20071129
  Receipt Date: 20071114
  Transmission Date: 20080405
  Serious: Yes (Hospitalization)
  Sender: FDA-Public Use
  Company Number: ABMDB-07-0924

PATIENT
  Age: 52 Year
  Sex: Female
  Weight: 65 kg

DRUGS (6)
  1. ABRAXANE [Suspect]
     Indication: BREAST CANCER
     Dosage: CYCLE 1 (260 MG/M2, Q3 WEEKS), INTRAVENOUS
     Route: 042
     Dates: start: 20071001, end: 20071004
  2. OXYCODONE HCL [Concomitant]
  3. DOCUSATE (DOCUSATE) [Concomitant]
  4. ZOFRAN [Concomitant]
  5. SENNOSIDES [Concomitant]
  6. LEVOFLOXACIN [Concomitant]

REACTIONS (5)
  - ANGIOEDEMA [None]
  - CHOKING [None]
  - DYSPHAGIA [None]
  - GASTROOESOPHAGEAL REFLUX DISEASE [None]
  - VISION BLURRED [None]
